FAERS Safety Report 9994829 (Version 1)
Quarter: 2014Q1

REPORT INFORMATION
  Report Type: Spontaneous
  Country: US (occurrence: None)
  Receive Date: 20140307
  Receipt Date: 20140307
  Transmission Date: 20141002
  Serious: No
  Sender: FDA-Public Use
  Company Number: None

PATIENT
  Age: 34 Year
  Sex: Female
  Weight: 50.8 kg

DRUGS (2)
  1. XYLOCAINE VISCOUS [Suspect]
     Indication: OROPHARYNGEAL PAIN
     Dosage: 1 DOSE -- TAKEN BY MOUTH
     Route: 048
     Dates: start: 20140227
  2. XYLOCAINE VISCOUS [Suspect]
     Indication: CHEST PAIN
     Dosage: 1 DOSE -- TAKEN BY MOUTH
     Route: 048
     Dates: start: 20140227

REACTIONS (21)
  - Burning sensation [None]
  - Erythema [None]
  - Hypersensitivity [None]
  - Headache [None]
  - Chills [None]
  - Pain [None]
  - Fatigue [None]
  - Musculoskeletal discomfort [None]
  - Musculoskeletal discomfort [None]
  - Asthenia [None]
  - Abasia [None]
  - Feeling abnormal [None]
  - Pain [None]
  - Hypoaesthesia [None]
  - Pruritus [None]
  - Paraesthesia [None]
  - Fatigue [None]
  - Weight decreased [None]
  - Dehydration [None]
  - Viral infection [None]
  - Malaise [None]
